FAERS Safety Report 19200753 (Version 1)
Quarter: 2021Q2

REPORT INFORMATION
  Report Type: Spontaneous
  Country: CA (occurrence: CA)
  Receive Date: 20210430
  Receipt Date: 20210430
  Transmission Date: 20210717
  Serious: Yes (Other)
  Sender: FDA-Public Use
  Company Number: CA-SAMSUNG BIOEPIS-SB-2021-10458

PATIENT
  Age: 73 Year
  Sex: Male

DRUGS (2)
  1. METHOTREXATE. [Concomitant]
     Active Substance: METHOTREXATE
     Indication: PRODUCT USED FOR UNKNOWN INDICATION
     Dosage: UNKNOWN
     Route: 058
  2. RENFLEXIS [Suspect]
     Active Substance: INFLIXIMAB-ABDA
     Indication: PRODUCT USED FOR UNKNOWN INDICATION
     Dosage: AS PER PROTOCOL
     Route: 042

REACTIONS (13)
  - Blood creatine increased [Unknown]
  - Haemoglobin decreased [Unknown]
  - Haematocrit decreased [Unknown]
  - Tenosynovitis [Not Recovered/Not Resolved]
  - Urine abnormality [Unknown]
  - Crystal urine present [Unknown]
  - Red blood cell count decreased [Unknown]
  - Renal impairment [Unknown]
  - Red cell distribution width increased [Unknown]
  - Inflammation [Unknown]
  - Mean cell haemoglobin increased [Unknown]
  - Product substitution issue [Unknown]
  - Drug ineffective [Unknown]
